FAERS Safety Report 10197196 (Version 2)
Quarter: 2014Q2

REPORT INFORMATION
  Report Type: Spontaneous
  Country: US (occurrence: US)
  Receive Date: 20140527
  Receipt Date: 20140630
  Transmission Date: 20141212
  Serious: Yes (Death, Hospitalization)
  Sender: FDA-Public Use
  Company Number: US-GLAXOSMITHKLINE-A1073777A

PATIENT
  Age: 34 Year
  Sex: Male

DRUGS (3)
  1. VENTOLIN [Suspect]
     Indication: POLYCYTHAEMIA
     Dosage: 1PUFF FOUR TIMES PER DAY
     Route: 055
     Dates: start: 20140405
  2. COMBIVENT [Concomitant]
  3. OXYGEN [Concomitant]

REACTIONS (9)
  - Acute respiratory failure [Fatal]
  - Cardiac failure [Fatal]
  - Pulmonary hypertension [Fatal]
  - Pneumonia fungal [Fatal]
  - Hypoxia [Fatal]
  - Sepsis [Fatal]
  - Pulmonary sarcoidosis [Fatal]
  - Dyspnoea [Fatal]
  - Pyrexia [Fatal]
